FAERS Safety Report 21320830 (Version 1)
Quarter: 2022Q3

REPORT INFORMATION
  Report Type: Spontaneous
  Country: DK (occurrence: DK)
  Receive Date: 20220912
  Receipt Date: 20220912
  Transmission Date: 20221026
  Serious: Yes (Hospitalization)
  Sender: FDA-Public Use
  Company Number: None

PATIENT
  Age: 54 Year
  Sex: Female

DRUGS (2)
  1. QUETIAPINE [Suspect]
     Active Substance: QUETIAPINE
     Indication: Anxiety
     Dosage: UNK
     Route: 065
     Dates: end: 202005
  2. ABILIFY MAINTENA [Suspect]
     Active Substance: ARIPIPRAZOLE
     Indication: Anxiety
     Dosage: 400 MG, Q4W (POWDER AND SOLVENT FOR PROLONGED-RELEASE SUSPENSION FOR INJECTION)
     Route: 065
     Dates: start: 20190911, end: 202005

REACTIONS (4)
  - Pneumonia [Recovered/Resolved]
  - Pulmonary embolism [Unknown]
  - Long QT syndrome [Recovered/Resolved]
  - Cardiac arrest [Recovered/Resolved with Sequelae]

NARRATIVE: CASE EVENT DATE: 20191101
